FAERS Safety Report 4408602-3 (Version None)
Quarter: 2004Q3

REPORT INFORMATION
  Report Type: 
  Country: None (occurrence: None)
  Receive Date: 20040723
  Receipt Date: 20040423
  Transmission Date: 20050211
  Serious: Yes (Hospitalization)
  Sender: FDA-Public Use
  Company Number: 2000-BL-00324

PATIENT
  Age: 46 Year
  Sex: Female

DRUGS (4)
  1. VIRAMUNE [Suspect]
     Indication: HIV INFECTION
     Dosage: SEE IMAGE PO
     Route: 048
     Dates: start: 20001016, end: 20001030
  2. VIRAMUNE [Suspect]
     Indication: HIV INFECTION
     Dosage: SEE IMAGE PO
     Route: 048
     Dates: start: 20001031, end: 20001116
  3. STAVUDINE (STAVUDINE) [Suspect]
     Indication: HIV INFECTION
     Dosage: 60 MG (30 MG, BID) PO
     Route: 048
     Dates: start: 20001016, end: 20001116
  4. LAMIVUDINE (LAMIVUDINE) [Suspect]
     Indication: HIV INFECTION
     Dosage: 300 MG (150 MG, BID) PO
     Route: 048
     Dates: start: 20001016, end: 20001116

REACTIONS (6)
  - ANOREXIA [None]
  - EOSINOPHILIA [None]
  - HEPATITIS [None]
  - INFLUENZA LIKE ILLNESS [None]
  - PYREXIA [None]
  - RASH PRURITIC [None]
